FAERS Safety Report 6711691-4 (Version None)
Quarter: 2010Q2

REPORT INFORMATION
  Report Type: 
  Country: None (occurrence: None)
  Receive Date: 20100505
  Receipt Date: 20100412
  Transmission Date: 20101027
  Serious: No
  Sender: FDA-Public Use
  Company Number: US-ROCHE-694906

PATIENT
  Sex: Female

DRUGS (4)
  1. VALCYTE [Suspect]
     Route: 065
  2. VALCYTE [Suspect]
     Route: 065
  3. CYTOVENE [Suspect]
     Route: 065
  4. CYTOVENE [Suspect]
     Route: 065

REACTIONS (1)
  - DRUG HYPERSENSITIVITY [None]
